FAERS Safety Report 4527250-8 (Version None)
Quarter: 2004Q4

REPORT INFORMATION
  Report Type: 
  Country: None (occurrence: None)
  Receive Date: 20041214
  Receipt Date: 20041214
  Transmission Date: 20050328
  Serious: Yes (Other)
  Sender: FDA-Public Use
  Company Number: None

PATIENT
  Sex: Male
  Weight: 92.5338 kg

DRUGS (2)
  1. METOCLOPRAMIDE [Suspect]
     Indication: IMPAIRED GASTRIC EMPTYING
     Dosage: 10 MG AC AND H.S.
     Dates: start: 20041126, end: 20041209
  2. METOCLOPRAMIDE [Suspect]
     Indication: NAUSEA
     Dosage: 10 MG AC AND H.S.
     Dates: start: 20041126, end: 20041209

REACTIONS (3)
  - DYSPEPSIA [None]
  - NAUSEA [None]
  - PHARMACEUTICAL PRODUCT COMPLAINT [None]
